FAERS Safety Report 19814748 (Version 1)
Quarter: 2021Q3

REPORT INFORMATION
  Report Type: Spontaneous
  Country: US (occurrence: US)
  Receive Date: 20210907
  Receipt Date: 20210907
  Transmission Date: 20211014
  Serious: No
  Sender: FDA-Public Use
  Company Number: None

PATIENT
  Sex: Female

DRUGS (1)
  1. REMICADE [Suspect]
     Active Substance: INFLIXIMAB
     Indication: COLITIS ULCERATIVE
     Dosage: ?          OTHER STRENGTH:100MG/VL;?
     Route: 042
     Dates: start: 20180402

REACTIONS (5)
  - Infusion related reaction [None]
  - Flushing [None]
  - Feeling abnormal [None]
  - Vomiting [None]
  - Abdominal discomfort [None]
